FAERS Safety Report 9712558 (Version 1)
Quarter: 2013Q4

REPORT INFORMATION
  Report Type: Spontaneous
  Country: US (occurrence: US)
  Receive Date: 20131126
  Receipt Date: 20131126
  Transmission Date: 20140711
  Serious: No
  Sender: FDA-Public Use
  Company Number: US-BRISTOL-MYERS SQUIBB COMPANY-18890277

PATIENT
  Age: 54 Year
  Sex: Female

DRUGS (5)
  1. BYDUREON [Suspect]
  2. LANTUS [Concomitant]
  3. GLIMEPIRIDE [Concomitant]
  4. JANUVIA [Concomitant]
  5. STARLIX [Concomitant]

REACTIONS (1)
  - Injection site pain [Unknown]
